FAERS Safety Report 5483964-7 (Version None)
Quarter: 2007Q4

REPORT INFORMATION
  Report Type: 
  Country: None (occurrence: None)
  Receive Date: 20071012
  Receipt Date: 20071002
  Transmission Date: 20080405
  Serious: Yes (Other)
  Sender: FDA-Public Use
  Company Number: GB-ROCHE-523325

PATIENT
  Age: 77 Year
  Sex: Female
  Weight: 60 kg

DRUGS (6)
  1. BONIVA [Suspect]
     Indication: OSTEOPOROSIS
     Route: 048
     Dates: start: 20070712
  2. DOXAZOSIN MESYLATE [Concomitant]
     Route: 048
     Dates: start: 20000101
  3. LOSARTAN POTASSIUM [Concomitant]
     Route: 048
     Dates: start: 20000101
  4. METFORMIN HCL [Concomitant]
     Route: 048
     Dates: start: 20000101
  5. NITRAZEPAM [Concomitant]
     Indication: SLEEP DISORDER
     Route: 048
     Dates: start: 19900101
  6. SIMVASTATIN [Concomitant]
     Indication: CARDIOVASCULAR EVENT PROPHYLAXIS
     Route: 048
     Dates: start: 20000101

REACTIONS (1)
  - VAGINAL HAEMORRHAGE [None]
